FAERS Safety Report 4574446-5 (Version None)
Quarter: 2005Q1

REPORT INFORMATION
  Report Type: 
  Country: None (occurrence: None)
  Receive Date: 20050208
  Receipt Date: 20010824
  Transmission Date: 20050727
  Serious: Yes (Other)
  Sender: FDA-Public Use
  Company Number: US-GLAXOSMITHKLINE-A0352287A

PATIENT
  Sex: Female

DRUGS (6)
  1. PAXIL [Suspect]
     Indication: DEPRESSION
     Dates: start: 19960101
  2. ZYRTEC [Concomitant]
     Dosage: 10MG PER DAY
     Route: 048
  3. ATIVAN [Concomitant]
     Route: 048
     Dates: start: 20000811
  4. WELLBUTRIN [Concomitant]
     Indication: DEPRESSION
     Dosage: 100MG PER DAY
     Route: 048
     Dates: start: 19981208, end: 19981228
  5. PROZAC [Concomitant]
     Route: 048
     Dates: start: 20000713, end: 20000715
  6. CLINDAMYCIN [Concomitant]

REACTIONS (22)
  - ANXIETY [None]
  - CHOKING SENSATION [None]
  - CRYING [None]
  - DEPENDENCE [None]
  - DIZZINESS [None]
  - DRUG WITHDRAWAL SYNDROME [None]
  - FATIGUE [None]
  - FEELING COLD [None]
  - FOOD INTOLERANCE [None]
  - HEADACHE [None]
  - HOT FLUSH [None]
  - HYPERHIDROSIS [None]
  - INSOMNIA [None]
  - LIBIDO DECREASED [None]
  - MENTAL DISORDER [None]
  - MYALGIA [None]
  - NAUSEA [None]
  - PARAESTHESIA [None]
  - SENSATION OF FOREIGN BODY [None]
  - SENSORY DISTURBANCE [None]
  - SUICIDAL IDEATION [None]
  - VOMITING [None]
